FAERS Safety Report 6734722-4 (Version None)
Quarter: 2010Q2

REPORT INFORMATION
  Report Type: 
  Country: None (occurrence: None)
  Receive Date: 20100519
  Receipt Date: 20100519
  Transmission Date: 20101027
  Serious: Yes (Other)
  Sender: FDA-Public Use
  Company Number: None

PATIENT
  Sex: Female
  Weight: 70.7611 kg

DRUGS (1)
  1. EVISTA [Suspect]
     Indication: BREAST CANCER IN SITU
     Dosage: 60 MG DAILY ORAL
     Route: 048
     Dates: start: 20081119, end: 20100502

REACTIONS (8)
  - ARTHRALGIA [None]
  - BREAST TENDERNESS [None]
  - DRUG TOXICITY [None]
  - HOT FLUSH [None]
  - INFLUENZA [None]
  - MUSCLE SPASMS [None]
  - PARAESTHESIA [None]
  - RASH [None]
